FAERS Safety Report 5399748-4 (Version None)
Quarter: 2007Q3

REPORT INFORMATION
  Report Type: 
  Country: None (occurrence: None)
  Receive Date: 20070727
  Receipt Date: 20070717
  Transmission Date: 20080115
  Serious: Yes (Other)
  Sender: FDA-Public Use
  Company Number: FR-PFIZER INC-2007060539

PATIENT
  Sex: Female

DRUGS (6)
  1. ALDACTONE [Suspect]
     Indication: CARDIAC FAILURE
     Route: 048
     Dates: start: 20070423, end: 20070509
  2. MINISINTROM [Suspect]
     Indication: ATRIAL FIBRILLATION
     Route: 048
     Dates: start: 20060501, end: 20070514
  3. CARDENSIEL [Suspect]
     Indication: CARDIAC FAILURE
     Route: 048
     Dates: start: 20070424, end: 20070509
  4. FUROSEMIDE [Concomitant]
     Route: 048
  5. PERINDOPRIL [Concomitant]
     Dosage: DAILY DOSE:4MG
     Route: 048
     Dates: start: 20070411
  6. PERINDOPRIL [Concomitant]
     Dosage: DAILY DOSE:2MG
     Route: 048
     Dates: start: 20070424

REACTIONS (4)
  - EOSINOPHILIA [None]
  - FLUSHING [None]
  - LEUKOCYTOCLASTIC VASCULITIS [None]
  - PURPURA [None]
